FAERS Safety Report 5541513-9 (Version None)
Quarter: 2007Q4

REPORT INFORMATION
  Report Type: 
  Country: None (occurrence: None)
  Receive Date: 20071210
  Receipt Date: 20071204
  Transmission Date: 20080405
  Serious: Yes (Other)
  Sender: FDA-Public Use
  Company Number: PHNU2007DE02850

PATIENT
  Age: 62 Year
  Sex: Male

DRUGS (2)
  1. ZOMETA [Suspect]
     Indication: METASTASES TO BONE
     Dosage: 4 MG, QMO
     Route: 042
     Dates: start: 20070628
  2. TRENANTONE [Concomitant]
     Indication: PROSTATE CANCER
     Dosage: UNK, Q3MO
     Dates: start: 20070619

REACTIONS (6)
  - CONJUNCTIVITIS [None]
  - EYE SWELLING [None]
  - HEPATIC ENZYME ABNORMAL [None]
  - INFLUENZA LIKE ILLNESS [None]
  - MICTURITION DISORDER [None]
  - PYREXIA [None]
